FAERS Safety Report 11099242 (Version 1)
Quarter: 2015Q2

REPORT INFORMATION
  Report Type: Spontaneous
  Country: US (occurrence: US)
  Receive Date: 20150508
  Receipt Date: 20150508
  Transmission Date: 20150821
  Serious: Yes (Other)
  Sender: FDA-Public Use
  Company Number: US-UCBSA-2014015371

PATIENT

DRUGS (1)
  1. CIMZIA [Suspect]
     Active Substance: CERTOLIZUMAB PEGOL
     Indication: PRODUCT USED FOR UNKNOWN INDICATION
     Dosage: UNK, EV 4 WEEKS
     Dates: start: 2014

REACTIONS (6)
  - Abdominal distension [Unknown]
  - Drug ineffective [Unknown]
  - Vomiting [Unknown]
  - Product quality issue [Unknown]
  - Pain [Unknown]
  - Infection [Unknown]
